FAERS Safety Report 5127155-8 (Version None)
Quarter: 2006Q4

REPORT INFORMATION
  Report Type: 
  Country: None (occurrence: None)
  Receive Date: 20061010
  Receipt Date: 20060928
  Transmission Date: 20070319
  Serious: Yes (Other)
  Sender: FDA-Public Use
  Company Number: 2006110696

PATIENT
  Age: 30 Year
  Sex: Male

DRUGS (4)
  1. HALCION [Suspect]
     Indication: SLEEP DISORDER
     Dosage: 0.125 MG, ORAL
     Route: 048
  2. TOLEDOMINE (MILNACIPRAN HYDROCHLORIDE) [Suspect]
     Indication: DEPRESSION
     Dosage: ORAL
     Route: 048
     Dates: end: 20060401
  3. LEXOTAN (BROMAZEPAM) [Suspect]
     Indication: ANXIETY
     Dosage: ORAL
     Route: 048
     Dates: end: 20060401
  4. PAXIL [Concomitant]

REACTIONS (1)
  - LOSS OF CONSCIOUSNESS [None]
